FAERS Safety Report 24927156 (Version 1)
Quarter: 2025Q1

REPORT INFORMATION
  Report Type: Spontaneous
  Country: JP (occurrence: JP)
  Receive Date: 20250205
  Receipt Date: 20250205
  Transmission Date: 20250409
  Serious: Yes (Other)
  Sender: GLAXOSMITHKLINE
  Company Number: JP-TAKEDA-2025TJP001248

PATIENT

DRUGS (3)
  1. ZEJULA [Suspect]
     Active Substance: NIRAPARIB
     Indication: Ovarian cancer
     Route: 048
     Dates: start: 20240516
  2. ZEJULA [Suspect]
     Active Substance: NIRAPARIB
     Route: 048
  3. ZEJULA [Suspect]
     Active Substance: NIRAPARIB
     Route: 048
     Dates: end: 20241121

REACTIONS (2)
  - Neoplasm progression [Unknown]
  - Platelet count decreased [Not Recovered/Not Resolved]

NARRATIVE: CASE EVENT DATE: 20240606
